FAERS Safety Report 7631464-8 (Version None)
Quarter: 2011Q3

REPORT INFORMATION
  Report Type: 
  Country: None (occurrence: None)
  Receive Date: 20110725
  Receipt Date: 20110715
  Transmission Date: 20111222
  Serious: Yes (Other)
  Sender: FDA-Public Use
  Company Number: PHHY2011JP65676

PATIENT
  Sex: Female

DRUGS (7)
  1. CLINDAMYCIN PHOSPHATE [Suspect]
     Dosage: UNK UKN, UNK
     Route: 064
  2. MIRACLID [Concomitant]
     Route: 064
  3. CEFEPIME [Suspect]
  4. MAGSENT [Concomitant]
  5. UTERON [Suspect]
     Dosage: 288 MG, (144-288 MG)
     Route: 064
  6. AMPICILLIN AND SULBACTAM [Suspect]
     Dosage: 6 G/DAY
     Route: 064
  7. FERRUM [Concomitant]
     Route: 064

REACTIONS (3)
  - SMALL FOR DATES BABY [None]
  - PREMATURE BABY [None]
  - MATERNAL EXPOSURE DURING PREGNANCY [None]
